FAERS Safety Report 4380678-1 (Version None)
Quarter: 2004Q2

REPORT INFORMATION
  Report Type: 
  Country: None (occurrence: None)
  Receive Date: 20040618
  Receipt Date: 20040607
  Transmission Date: 20050107
  Serious: Yes (Hospitalization)
  Sender: FDA-Public Use
  Company Number: FR-BRISTOL-MYERS SQUIBB COMPANY-12609459

PATIENT
  Age: 73 Year
  Sex: Male
  Weight: 90 kg

DRUGS (15)
  1. OXACILLIN [Suspect]
     Route: 048
     Dates: start: 20040422, end: 20040430
  2. CALCIPARINE [Suspect]
     Route: 058
     Dates: start: 20040423, end: 20040504
  3. KARDEGIC [Suspect]
     Route: 048
     Dates: start: 20040420
  4. OFLOCET [Suspect]
     Route: 048
     Dates: start: 20040424, end: 20040430
  5. LASILIX [Suspect]
     Route: 048
  6. TRIATEC [Suspect]
     Route: 048
  7. JOSIR [Concomitant]
  8. XANAX [Concomitant]
  9. STILNOX [Concomitant]
  10. HEPARIN [Concomitant]
  11. ASPIRIN [Concomitant]
  12. ELISOR [Concomitant]
  13. RIFADIN [Concomitant]
  14. INEXIUM [Concomitant]
  15. NITRODERM [Concomitant]

REACTIONS (2)
  - PURPURA [None]
  - VASCULITIS [None]
